FAERS Safety Report 8110191 (Version 2)
Quarter: 2013Q4

REPORT INFORMATION
  Report Type: Spontaneous
  Country: US (occurrence: US)
  Receive Date: 20110829
  Receipt Date: 20131231
  Transmission Date: 20140711
  Serious: Yes (Life-Threatening, Hospitalization)
  Sender: FDA-Public Use
  Company Number: US-BAYER-2011-078000

PATIENT
  Age: 30 Year
  Sex: Female

DRUGS (16)
  1. YAZ [Suspect]
  2. YASMIN [Suspect]
  3. OCELLA [Suspect]
  4. CEPHALEXIN [Concomitant]
     Dosage: 500 MG, UNK
     Route: 048
     Dates: start: 20090625
  5. NITROFURANTOIN [Concomitant]
     Dosage: 100 MG, UNK
     Route: 048
     Dates: start: 20090707
  6. AMBIEN [Concomitant]
     Dosage: 12.5 MG, UNK
     Route: 048
     Dates: start: 20090716
  7. LAMOTRIGINE [Concomitant]
     Dosage: 25 MG, LONG TERM USE
     Route: 048
  8. GEODON [Concomitant]
     Dosage: 20 MG, LONG TERM USE
     Route: 048
  9. ALPRAZOLAM [Concomitant]
     Dosage: 0.5 MG, LONG TERM USE
     Route: 048
  10. METOCLOPRAMIDE [Concomitant]
     Dosage: 10 MG, UNK
     Route: 048
     Dates: start: 20090828
  11. LAMICTAL [Concomitant]
     Dosage: 100 MG, LONG TERM USE
     Route: 048
  12. PERCOCET [Concomitant]
     Dosage: 5/325 MG
     Route: 048
     Dates: start: 20090905
  13. XANAX [Concomitant]
     Dosage: 0.5 MG, LONG TERM USE
     Route: 048
  14. PROTONIX [Concomitant]
     Dosage: 40 MG, LONG TERM USE
     Route: 048
  15. ZOSYN [Concomitant]
  16. DILAUDID [Concomitant]

REACTIONS (9)
  - Cholecystitis [None]
  - Internal injury [None]
  - Internal injury [None]
  - Anxiety [None]
  - Anhedonia [None]
  - Injury [None]
  - Pain [None]
  - Gallbladder disorder [None]
  - Gallbladder non-functioning [None]
